FAERS Safety Report 11263442 (Version 1)
Quarter: 2015Q3

REPORT INFORMATION
  Report Type: Spontaneous
  Country: US (occurrence: US)
  Receive Date: 20150713
  Receipt Date: 20150713
  Transmission Date: 20151125
  Serious: No
  Sender: FDA-Public Use
  Company Number: US-ASTRAZENECA-2015SE63811

PATIENT
  Sex: Male

DRUGS (3)
  1. PROBENECID. [Concomitant]
     Active Substance: PROBENECID
     Route: 065
  2. NABROXEN [Concomitant]
     Route: 065
  3. OMEPRAZOLE. [Suspect]
     Active Substance: OMEPRAZOLE
     Dosage: UNKNOWN
     Route: 048

REACTIONS (1)
  - Gout [Unknown]
